FAERS Safety Report 14956418 (Version 4)
Quarter: 2018Q3

REPORT INFORMATION
  Report Type: Spontaneous
  Country: US (occurrence: US)
  Receive Date: 20180531
  Receipt Date: 20180920
  Transmission Date: 20181010
  Serious: Yes (Death, Hospitalization)
  Sender: FDA-Public Use
  Company Number: US-PFIZER INC-2018221191

PATIENT
  Age: 55 Year
  Sex: Female
  Weight: 47.62 kg

DRUGS (2)
  1. IBRANCE [Suspect]
     Active Substance: PALBOCICLIB
     Indication: BREAST CANCER METASTATIC
     Dosage: 125 MG, CYCLIC (DAYS 1?21 Q28 DAYS)
     Route: 048
     Dates: start: 20180523
  2. IBRANCE [Suspect]
     Active Substance: PALBOCICLIB
     Dosage: 100 MG, CYCLIC [DAY 1?21 Q 28 DAYS]
     Route: 048
     Dates: start: 2018

REACTIONS (13)
  - Somnolence [Unknown]
  - Death [Fatal]
  - Nausea [Not Recovered/Not Resolved]
  - Dehydration [Unknown]
  - Anaemia [Unknown]
  - Dysphagia [Unknown]
  - Decreased appetite [Unknown]
  - Anxiety [Unknown]
  - Malaise [Unknown]
  - Asthenia [Unknown]
  - Asthenia [Unknown]
  - Weight decreased [Unknown]
  - Vomiting [Unknown]

NARRATIVE: CASE EVENT DATE: 201805
